FAERS Safety Report 8593623 (Version 3)
Quarter: 2014Q1

REPORT INFORMATION
  Report Type: Spontaneous
  Country: US (occurrence: US)
  Receive Date: 20120604
  Receipt Date: 20140103
  Transmission Date: 20141002
  Serious: Yes (Hospitalization, Disabling, Other)
  Sender: FDA-Public Use
  Company Number: US-ASTRAZENECA-2012SE35424

PATIENT
  Age: 70 Year
  Sex: Female
  Weight: 73.9 kg

DRUGS (12)
  1. NEXIUM [Suspect]
     Indication: GASTROOESOPHAGEAL REFLUX DISEASE
     Dosage: ONCE DAILY
     Route: 048
  2. NEXIUM [Suspect]
     Indication: GASTROOESOPHAGEAL REFLUX DISEASE
     Dosage: ONCE DAILY
     Route: 048
     Dates: start: 1990
  3. PRILOSEC [Suspect]
     Indication: GASTROOESOPHAGEAL REFLUX DISEASE
     Route: 048
  4. OMEPRAZOLE OTC [Suspect]
     Indication: GASTROOESOPHAGEAL REFLUX DISEASE
     Route: 048
  5. PEPTO BISMOL/KAOPECTATE [Concomitant]
     Dosage: 2 TBSP TWICE IN YEAR
  6. IMODIUM [Concomitant]
     Dosage: 2 TBSP TWICE IN YEAR
  7. LEVOTHYROXINE [Concomitant]
     Indication: HYPOTHYROIDISM
  8. MELOXICAN [Concomitant]
     Indication: ARTHRITIS
  9. OXYBUTYNIN FLOURIDE [Concomitant]
  10. GABAPENTIN [Concomitant]
     Indication: BACK PAIN
  11. HYDROCODONE [Concomitant]
     Indication: BACK PAIN
  12. FUROSEMIDE [Concomitant]

REACTIONS (9)
  - Back disorder [Unknown]
  - Gallbladder disorder [Unknown]
  - Hip fracture [Unknown]
  - Bunion [Unknown]
  - Pubis fracture [Unknown]
  - Depression [Unknown]
  - Cataract [Unknown]
  - Osteoporosis [Unknown]
  - Osteoarthritis [Unknown]
